FAERS Safety Report 14829282 (Version 3)
Quarter: 2018Q2

REPORT INFORMATION
  Report Type: Spontaneous
  Country: JP (occurrence: JP)
  Receive Date: 20180430
  Receipt Date: 20180530
  Transmission Date: 20180711
  Serious: No
  Sender: FDA-Public Use
  Company Number: JP-PFM-2017-11084

PATIENT

DRUGS (1)
  1. HEMANGIOL [Suspect]
     Active Substance: PROPRANOLOL HYDROCHLORIDE
     Indication: INFANTILE HAEMANGIOMA
     Dosage: 2.5 MG/KG (3/1 DAY)
     Route: 048

REACTIONS (3)
  - Product use issue [Unknown]
  - Off label use [Unknown]
  - Inappropriate schedule of drug administration [Unknown]
